FAERS Safety Report 4594773-5 (Version None)
Quarter: 2005Q1

REPORT INFORMATION
  Report Type: 
  Country: None (occurrence: None)
  Receive Date: 20050223
  Receipt Date: 19970717
  Transmission Date: 20050727
  Serious: Yes (Other)
  Sender: FDA-Public Use
  Company Number: KII-1997-0015261

PATIENT
  Sex: Female

DRUGS (1)
  1. SENOKOT [Suspect]

REACTIONS (1)
  - DRUG DEPENDENCE [None]
